FAERS Safety Report 7749358-6 (Version None)
Quarter: 2011Q3

REPORT INFORMATION
  Report Type: 
  Country: None (occurrence: None)
  Receive Date: 20110825
  Receipt Date: 20110525
  Transmission Date: 20111222
  Serious: No
  Sender: FDA-Public Use
  Company Number: 329952

PATIENT
  Age: 65 Year

DRUGS (1)
  1. VICTOZA [Suspect]
     Indication: OFF LABEL USE
     Dosage: SUBCUTANEOUS
     Route: 058

REACTIONS (4)
  - NAUSEA [None]
  - ABDOMINAL PAIN [None]
  - DIARRHOEA [None]
  - LIPASE INCREASED [None]
